FAERS Safety Report 5505087-0 (Version None)
Quarter: 2007Q4

REPORT INFORMATION
  Report Type: 
  Country: None (occurrence: None)
  Receive Date: 20071102
  Receipt Date: 20071024
  Transmission Date: 20080405
  Serious: Yes (Other)
  Sender: FDA-Public Use
  Company Number: US-ASTRAZENECA-2007UW01227

PATIENT
  Age: 875 Month
  Sex: Female
  Weight: 55.3 kg

DRUGS (14)
  1. NEXIUM [Suspect]
     Indication: GASTROOESOPHAGEAL REFLUX DISEASE
     Route: 048
     Dates: start: 20070105, end: 20070315
  2. NEXIUM [Suspect]
     Route: 048
     Dates: start: 20070701
  3. SIMVASTATIN [Concomitant]
  4. NORPACE [Concomitant]
  5. SYNTHROID [Concomitant]
  6. LISINOPRIL [Concomitant]
  7. DIGITEK [Concomitant]
  8. ASPIRIN [Concomitant]
  9. STOOL SOFTENER [Concomitant]
  10. MULTIVITAMIN W/ MINERALS [Concomitant]
  11. CALCIUM [Concomitant]
  12. GLUCOSAMINE W/CONDROITIN [Concomitant]
  13. HYDROCHLOROTHIAZIDE [Concomitant]
  14. PREDNISONE [Concomitant]

REACTIONS (6)
  - GASTROINTESTINAL ARTERIOVENOUS MALFORMATION [None]
  - GASTROOESOPHAGEAL REFLUX DISEASE [None]
  - NAUSEA [None]
  - PHOTOSENSITIVITY REACTION [None]
  - PRURITUS [None]
  - RASH [None]
